FAERS Safety Report 9445969 (Version 1)
Quarter: 2013Q3

REPORT INFORMATION
  Report Type: Report from Study
  Country: US (occurrence: US)
  Receive Date: 20130807
  Receipt Date: 20130807
  Transmission Date: 20140515
  Serious: Yes (Hospitalization)
  Sender: FDA-Public Use
  Company Number: US-ROCHE-1254627

PATIENT
  Age: 80 Year
  Sex: Female

DRUGS (11)
  1. LUCENTIS [Suspect]
     Indication: AGE-RELATED MACULAR DEGENERATION
     Dosage: LEFT EYE
     Route: 050
     Dates: end: 2013
  2. AVASTIN [Suspect]
     Indication: AGE-RELATED MACULAR DEGENERATION
     Dosage: LEFT EYE
     Route: 050
     Dates: start: 2013
  3. LEVOTHYROXINE [Concomitant]
     Route: 065
  4. SINGULAIR [Concomitant]
     Indication: BRONCHITIS
     Dosage: EVERY EVENING
     Route: 065
  5. ASPIRIN [Concomitant]
     Route: 065
  6. CLARINEX (UNITED STATES) [Concomitant]
  7. TYLENOL [Concomitant]
  8. ALBUTEROL [Concomitant]
  9. LISINOPRIL [Concomitant]
     Indication: HYPERTENSION
     Route: 065
  10. ATENOLOL [Concomitant]
     Indication: HYPERTENSION
  11. NIFEDIAC CC [Concomitant]
     Dosage: EVERY EVENING
     Route: 065

REACTIONS (4)
  - Syncope [Unknown]
  - Cataract [Unknown]
  - Bronchitis [Not Recovered/Not Resolved]
  - Escherichia infection [Unknown]
